FAERS Safety Report 5287125-6 (Version None)
Quarter: 2007Q1

REPORT INFORMATION
  Report Type: 
  Country: None (occurrence: None)
  Receive Date: 20070116
  Receipt Date: 20060918
  Transmission Date: 20070707
  Serious: No
  Sender: FDA-Public Use
  Company Number: 2006SP003327

PATIENT
  Age: 63 Year
  Sex: Male
  Weight: 95.2554 kg

DRUGS (6)
  1. LUNESTA [Suspect]
     Indication: INSOMNIA
     Dosage: 3 MG; ORAL
     Route: 048
     Dates: start: 20060401, end: 20060914
  2. VALSARTAN [Concomitant]
  3. ZIAC [Concomitant]
  4. PROCARDIA [Concomitant]
  5. CLONIDINE [Concomitant]
  6. VICK VAPOR-RUB [Concomitant]

REACTIONS (1)
  - HALLUCINATION [None]
